FAERS Safety Report 7911441-X (Version None)
Quarter: 2011Q4

REPORT INFORMATION
  Report Type: 
  Country: None (occurrence: None)
  Receive Date: 20111114
  Receipt Date: 20111110
  Transmission Date: 20120403
  Serious: Yes (Hospitalization, Other)
  Sender: FDA-Public Use
  Company Number: IT-BAYER-2011-109298

PATIENT
  Age: 57 Year
  Sex: Male

DRUGS (7)
  1. RAMIPRIL [Concomitant]
     Route: 048
  2. ASPIRIN [Suspect]
     Indication: CORONARY ANGIOPLASTY
     Dosage: 100 MG, QD
     Route: 048
     Dates: start: 20110401
  3. RANITIDINE [Concomitant]
  4. CONGESCOR [Concomitant]
     Route: 048
  5. PLAVIX [Suspect]
     Indication: CORONARY ANGIOPLASTY
     Dosage: 75 MG, QD
     Route: 048
     Dates: start: 20110401, end: 20111103
  6. POTASSIUM CHLORIDE [Concomitant]
     Dosage: 600 MG, UNK
     Route: 048
  7. METFORMIN [Concomitant]
     Route: 048

REACTIONS (1)
  - RECTAL HAEMORRHAGE [None]
